FAERS Safety Report 17301016 (Version 2)
Quarter: 2020Q1

REPORT INFORMATION
  Report Type: Report from Study
  Country: US (occurrence: US)
  Receive Date: 20200122
  Receipt Date: 20200226
  Transmission Date: 20200409
  Serious: Yes (Hospitalization)
  Sender: FDA-Public Use
  Company Number: US-PFIZER INC-2020015040

PATIENT
  Age: 66 Year
  Sex: Female
  Weight: 62.9 kg

DRUGS (17)
  1. MARINOL [Concomitant]
     Active Substance: DRONABINOL
     Dosage: 5 MG TWICE DAILY
     Route: 048
  2. ENALAPRIL MALEATE. [Concomitant]
     Active Substance: ENALAPRIL MALEATE
     Dosage: UNK UNK, QDAY
     Route: 048
  3. GABAPENTIN. [Concomitant]
     Active Substance: GABAPENTIN
     Dosage: 1 TAB(S), QID
     Route: 048
  4. ONDANSETRON [Concomitant]
     Active Substance: ONDANSETRON
     Indication: NAUSEA
     Dosage: 1 TAB(S),Q8HR, PRN
     Route: 048
  5. ATROPINE-DIPHENOXYLATE [Concomitant]
     Indication: DIARRHOEA
     Dosage: 2 TAB(S), AS NEEDED
     Route: 048
  6. METHYLPHENIDATE. [Concomitant]
     Active Substance: METHYLPHENIDATE
     Dosage: 1 TAB(S), BID
     Route: 048
  7. LEVEMIR [Concomitant]
     Active Substance: INSULIN DETEMIR
     Dosage: 80 UNITS
     Route: 058
  8. OMEPRAZOLE. [Concomitant]
     Active Substance: OMEPRAZOLE
     Dosage: UNK UNK, QDAY
     Route: 048
  9. ONDANSETRON [Concomitant]
     Active Substance: ONDANSETRON
     Indication: VOMITING
  10. LACTULOSE. [Concomitant]
     Active Substance: LACTULOSE
     Dosage: UNK UNK, PRN
  11. IBRANCE [Suspect]
     Active Substance: PALBOCICLIB
     Indication: PANCREATIC CARCINOMA METASTATIC
     Dosage: 75 MG, DAILY
     Dates: start: 20191010
  12. COLACE [Concomitant]
     Active Substance: DOCUSATE SODIUM
     Dosage: 1 CAP(S), BID
     Route: 048
  13. METOCLOPRAMIDE. [Concomitant]
     Active Substance: METOCLOPRAMIDE
     Dosage: 10 MG, BID
     Route: 048
  14. TURMERIC [CURCUMA LONGA RHIZOME] [Concomitant]
     Active Substance: HERBALS\TURMERIC
  15. CISPLATIN. [Suspect]
     Active Substance: CISPLATIN
     Indication: PANCREATIC CARCINOMA METASTATIC
     Dosage: 627/6AUC MG/M2/DOSE, MONTHLY
     Dates: start: 20191010
  16. NOVOLOG [Concomitant]
     Active Substance: INSULIN ASPART
     Route: 058
  17. TRAMADOL. [Concomitant]
     Active Substance: TRAMADOL
     Indication: PAIN
     Dosage: 1-2 TABS, Q8HR PRN
     Route: 048

REACTIONS (2)
  - Failure to thrive [Not Recovered/Not Resolved]
  - Fatigue [Not Recovered/Not Resolved]

NARRATIVE: CASE EVENT DATE: 20200110
